FAERS Safety Report 4851871-6 (Version None)
Quarter: 2005Q4

REPORT INFORMATION
  Report Type: 
  Country: None (occurrence: None)
  Receive Date: 20051125
  Receipt Date: 20050224
  Transmission Date: 20060501
  Serious: Yes (Hospitalization)
  Sender: FDA-Public Use
  Company Number: 2005030917

PATIENT
  Age: 55 Year
  Sex: Male
  Weight: 107.9561 kg

DRUGS (15)
  1. TIKOSYN [Suspect]
     Indication: ATRIAL FIBRILLATION
     Dosage: 0.5 MG (0.25 MG BID), ORAL; (0.5 MG TWICE DAILY), ORAL
     Route: 048
     Dates: start: 20040201
  2. TIKOSYN [Suspect]
     Indication: ATRIAL FIBRILLATION
     Dosage: 0.5 MG (0.25 MG BID), ORAL; (0.5 MG TWICE DAILY), ORAL
     Route: 048
     Dates: start: 20041001
  3. CARVEDILOL [Concomitant]
  4. LEVOTHYROXINE SODIUM [Concomitant]
  5. ASPIRIN [Concomitant]
  6. WARFARIN SODIUM [Concomitant]
  7. PREDNISONE [Concomitant]
  8. PRAVASTATIN SODIUM [Concomitant]
  9. TOCOPHEROL CONCENTRATE CAP [Concomitant]
  10. MULTIVITAMINS (ASCORBIC ACID, ERGOCALCIFEROL, FOLIC ACID, NICOTINAMIDE [Concomitant]
  11. CALCIUM GLUCONATE [Concomitant]
  12. MAGNESIUM [Concomitant]
  13. DIGOXIN [Concomitant]
  14. FISH OIL [Concomitant]
  15. FUROSEMIDE [Concomitant]

REACTIONS (2)
  - ATRIAL FIBRILLATION [None]
  - NEUROPATHY PERIPHERAL [None]
